FAERS Safety Report 11940831 (Version 1)
Quarter: 2016Q1

REPORT INFORMATION
  Report Type: Other
  Country: US (occurrence: US)
  Receive Date: 20160122
  Receipt Date: 20160122
  Transmission Date: 20160526
  Serious: Yes (Death)
  Sender: FDA-Public Use
  Company Number: US-PHARMA_RESEARCH_SOFTWARE_SOLUTION-USA-POI0580201600081

PATIENT
  Age: 52 Year
  Sex: Female

DRUGS (8)
  1. LISINOPRIL. [Suspect]
     Active Substance: LISINOPRIL
     Dates: end: 2014
  2. PHENYTOIN. [Suspect]
     Active Substance: PHENYTOIN
     Dates: end: 2014
  3. CARVEDILOL. [Suspect]
     Active Substance: CARVEDILOL
     Dates: end: 2014
  4. METOPROLOL SUCCINATE. [Suspect]
     Active Substance: METOPROLOL SUCCINATE
     Dates: end: 2014
  5. DILTIAZEM [Suspect]
     Active Substance: DILTIAZEM
     Dates: end: 2014
  6. CLONIDINE. [Suspect]
     Active Substance: CLONIDINE
     Dates: end: 2014
  7. CLOPIDOGREL [Suspect]
     Active Substance: CLOPIDOGREL BISULFATE
     Dates: end: 2014
  8. POTASSIUM CHLORIDE FOR ORAL SOLUTION [Suspect]
     Active Substance: POTASSIUM CHLORIDE
     Dates: end: 2014

REACTIONS (1)
  - Medication error [Fatal]

NARRATIVE: CASE EVENT DATE: 2014
